FAERS Safety Report 5730789-0 (Version None)
Quarter: 2008Q2

REPORT INFORMATION
  Report Type: 
  Country: None (occurrence: None)
  Receive Date: 20080505
  Receipt Date: 20080422
  Transmission Date: 20081010
  Serious: Yes (Other)
  Sender: FDA-Public Use
  Company Number: 47713

PATIENT
  Age: 41 Year
  Sex: Male

DRUGS (1)
  1. DACARBAZINE [Suspect]
     Indication: METASTATIC MALIGNANT MELANOMA
     Dosage: 1703MG
     Dates: start: 20070328, end: 20070524

REACTIONS (2)
  - MEDICATION ERROR [None]
  - OVERDOSE [None]
